FAERS Safety Report 18249362 (Version 1)
Quarter: 2020Q3

REPORT INFORMATION
  Report Type: Report from Study
  Country: US (occurrence: US)
  Receive Date: 20200909
  Receipt Date: 20200909
  Transmission Date: 20201103
  Serious: Yes (Hospitalization)
  Sender: FDA-Public Use
  Company Number: US-BAXTER-2020BAX018336

PATIENT
  Age: 69 Year
  Sex: Male

DRUGS (14)
  1. INOTUZUMAB OZOGAMICIN [Suspect]
     Active Substance: INOTUZUMAB OZOGAMICIN
     Dosage: CMC?544, CYCLIC, ON DAYS 2 AND 8 OF CYCLES 2 AND 4, REGIMEN B
     Route: 042
  2. INOTUZUMAB OZOGAMICIN [Suspect]
     Active Substance: INOTUZUMAB OZOGAMICIN
     Indication: ACUTE LYMPHOCYTIC LEUKAEMIA
     Dosage: CMC?544, CYCLIC, OVER 1 HOUR ON DAY 2 AND 8 OF CYCLES 1 AND 3, REGIMEN A
     Route: 042
     Dates: start: 20200430
  3. VINCRISTINE SULFATE. [Suspect]
     Active Substance: VINCRISTINE SULFATE
     Indication: PRODUCT USED FOR UNKNOWN INDICATION
     Dosage: CYCLIC, DAY 1 AND DAY 8, REGIMEN A
     Route: 042
  4. PEGFILGRASTIM [Suspect]
     Active Substance: PEGFILGRASTIM
     Indication: PRODUCT USED FOR UNKNOWN INDICATION
     Dosage: CYCLIC, ON DAY 4 UNTIL RECOVERY OF GRANULOCYTE COUNT, REGIMEN A
     Route: 058
  5. RITUXIMAB. [Suspect]
     Active Substance: RITUXIMAB
     Indication: PRODUCT USED FOR UNKNOWN INDICATION
     Dosage: CYCLIC, ON DAY 2 AND DAY 8 OF CYCLES 1 AND 3, REGIMEN A
     Route: 042
  6. ARA?C [Suspect]
     Active Substance: CYTARABINE
     Indication: PRODUCT USED FOR UNKNOWN INDICATION
     Dosage: CYCLIC, OVER 3 HOURS TWICE A DAY X 4 DOSES ON DAYS 2 AND 3, REGIMEN B
     Route: 042
  7. MESNEX [Suspect]
     Active Substance: MESNA
     Indication: PRODUCT USED FOR UNKNOWN INDICATION
     Dosage: CYCLIC, DAILY OVER 24 HOURS FOR 3 DAYS ON DAYS 1?3, REGIMEN A
     Route: 042
  8. METHOTREXATE SODIUM. [Suspect]
     Active Substance: METHOTREXATE SODIUM
     Dosage: CYCLIC, CONTINUOUS INFUSION OVER 22 HOURS ON DAY 1, REGIMEN B
     Route: 042
  9. RITUXIMAB. [Suspect]
     Active Substance: RITUXIMAB
     Dosage: CYCLIC, ON DAY 2 AND DAY 8 OF CYCLES 2 AND 4, REGIMEN B
     Route: 042
  10. INOTUZUMAB OZOGAMICIN [Suspect]
     Active Substance: INOTUZUMAB OZOGAMICIN
     Dosage: LAST DOSE AT EVENT START DATE
     Route: 042
     Dates: start: 20200706, end: 20200706
  11. PEGFILGRASTIM [Suspect]
     Active Substance: PEGFILGRASTIM
     Dosage: CYCLIC, ON DAY 4 UNTIL RECOVERY OF GRANULOCYTE COUNT, REGIMEN B
     Route: 058
  12. METHOTREXATE SODIUM. [Suspect]
     Active Substance: METHOTREXATE SODIUM
     Indication: PRODUCT USED FOR UNKNOWN INDICATION
     Dosage: CYCLIC, OVER 2HRS ON DAY 1, REGIMEN B
     Route: 042
  13. CYCLOPHOSPHAMIDE FOR INJECTION, USP [Suspect]
     Active Substance: CYCLOPHOSPHAMIDE
     Indication: PRODUCT USED FOR UNKNOWN INDICATION
     Dosage: CYCLIC, OVER 3 HOURS TWICE A DAY ON DAYS 1?3, REGIMEN A
     Route: 042
  14. DEXAMETHASONE. [Suspect]
     Active Substance: DEXAMETHASONE
     Indication: PRODUCT USED FOR UNKNOWN INDICATION
     Dosage: CYCLIC, DAILY FOR 4 DAYS ON DAYS 1?4 AND DAYS 11?14 REGIMEN A
     Route: 042

REACTIONS (1)
  - Hyponatraemia [Recovered/Resolved]

NARRATIVE: CASE EVENT DATE: 20200720
